FAERS Safety Report 23068387 (Version 1)
Quarter: 2023Q4

REPORT INFORMATION
  Report Type: Spontaneous
  Country: US (occurrence: None)
  Receive Date: 20231016
  Receipt Date: 20231016
  Transmission Date: 20240109
  Serious: No
  Sender: FDA-Public Use
  Company Number: US-ARIS GLOBAL-ADM202305-002131

PATIENT
  Age: 77 Year
  Sex: Female

DRUGS (2)
  1. GOCOVRI [Suspect]
     Active Substance: AMANTADINE
     Indication: Parkinson^s disease
     Dosage: NOT PROVIDED
  2. GOCOVRI [Suspect]
     Active Substance: AMANTADINE
     Indication: On and off phenomenon

REACTIONS (2)
  - Lethargy [Unknown]
  - Drug ineffective [Unknown]
